FAERS Safety Report 15767494 (Version 3)
Quarter: 2019Q2

REPORT INFORMATION
  Report Type: Report from Study
  Country: IL (occurrence: IL)
  Receive Date: 20181227
  Receipt Date: 20190402
  Transmission Date: 20190711
  Serious: Yes (Other)
  Sender: FDA-Public Use
  Company Number: IL-TAKEDA-2018TUS036378

PATIENT
  Age: 42 Year
  Sex: Male

DRUGS (5)
  1. SALAZOPYRIN [Concomitant]
     Active Substance: SULFASALAZINE
     Dosage: UNK
  2. VEDOLIZUMAB [Suspect]
     Active Substance: VEDOLIZUMAB
     Indication: COLITIS ULCERATIVE
     Dosage: 300 MILLIGRAM
     Route: 042
     Dates: start: 20170521
  3. RAFASSAL                           /00000301/ [Concomitant]
     Active Substance: AMINOSALICYLIC ACID
     Dosage: UNK
  4. EUTHYROX [Concomitant]
     Active Substance: LEVOTHYROXINE SODIUM
     Dosage: UNK
  5. VIT D [Concomitant]
     Active Substance: VITAMIN D NOS
     Dosage: UNK

REACTIONS (1)
  - Type 2 diabetes mellitus [Not Recovered/Not Resolved]

NARRATIVE: CASE EVENT DATE: 201812
